FAERS Safety Report 10923869 (Version 1)
Quarter: 2015Q1

REPORT INFORMATION
  Report Type: Spontaneous
  Country: US (occurrence: None)
  Receive Date: 20150129
  Receipt Date: 20150129
  Transmission Date: 20150721
  Serious: Yes (Hospitalization)
  Sender: FDA-Public Use
  Company Number: K201490302

PATIENT
  Age: 73 Year
  Sex: Male

DRUGS (11)
  1. SUSTIVA [Concomitant]
     Active Substance: EFAVIRENZ
  2. BUPROPION [Concomitant]
     Active Substance: BUPROPION
  3. ATIVAN [Concomitant]
     Active Substance: LORAZEPAM
  4. BABY ASPIRIN (ACETYLSALICYLIC ACID) [Concomitant]
     Active Substance: ASPIRIN
  5. FUROSEMIDE. [Concomitant]
     Active Substance: FUROSEMIDE
  6. PREZISTA [Concomitant]
     Active Substance: DARUNAVIR ETHANOLATE
  7. LAMIVUDINE. (LAMIVUDINE) TABLET [Suspect]
     Active Substance: LAMIVUDINE
     Indication: HIV INFECTION
     Route: 048
     Dates: start: 2011
  8. SUMATRIPTAN. [Concomitant]
     Active Substance: SUMATRIPTAN
  9. METHYLPHENIDATE [Concomitant]
     Active Substance: METHYLPHENIDATE
  10. NORVIR [Concomitant]
     Active Substance: RITONAVIR
  11. NORCO (HYDROCODONE BITARTRATE + PARACETAMOL) [Concomitant]

REACTIONS (1)
  - Abdominal pain upper [None]

NARRATIVE: CASE EVENT DATE: 201403
